FAERS Safety Report 6029839-6 (Version None)
Quarter: 2009Q1

REPORT INFORMATION
  Report Type: 
  Country: None (occurrence: None)
  Receive Date: 20090106
  Receipt Date: 20090106
  Transmission Date: 20090719
  Serious: No
  Sender: FDA-Public Use
  Company Number: None

PATIENT
  Sex: Female
  Weight: 55.3388 kg

DRUGS (1)
  1. COLESTID [Suspect]
     Indication: MALABSORPTION
     Dosage: 1GM 5 X QD PO
     Route: 048
     Dates: start: 20080701

REACTIONS (2)
  - PRODUCT QUALITY ISSUE [None]
  - TREATMENT FAILURE [None]
